FAERS Safety Report 11223027 (Version 1)
Quarter: 2015Q2

REPORT INFORMATION
  Report Type: Other
  Country: GB (occurrence: GB)
  Receive Date: 20150626
  Receipt Date: 20150626
  Transmission Date: 20150821
  Serious: Yes (Life-Threatening, Other)
  Sender: FDA-Public Use
  Company Number: GB-MYLANLABS-2015M1020390

PATIENT

DRUGS (2)
  1. ALIMTA [Suspect]
     Active Substance: PEMETREXED DISODIUM
     Indication: LUNG ADENOCARCINOMA
     Dosage: 500 MG/M2, UNK (500 MG/M2 (750MG))
     Route: 065
     Dates: start: 20150505, end: 20150505
  2. CISPLATIN. [Suspect]
     Active Substance: CISPLATIN
     Indication: LUNG ADENOCARCINOMA METASTATIC
     Dosage: 110 MG, UNK (110 MG, UNKNOWN)
     Route: 065
     Dates: start: 20150505, end: 20150505

REACTIONS (2)
  - Acute myocardial infarction [Recovered/Resolved with Sequelae]
  - Arteriospasm coronary [Unknown]

NARRATIVE: CASE EVENT DATE: 20150511
